FAERS Safety Report 11499942 (Version 3)
Quarter: 2015Q4

REPORT INFORMATION
  Report Type: Report from Study
  Country: JP (occurrence: JP)
  Receive Date: 20150914
  Receipt Date: 20151214
  Transmission Date: 20160304
  Serious: Yes (Other)
  Sender: FDA-Public Use
  Company Number: JP-SHIRE-JP201511336AA

PATIENT
  Age: 90 Year
  Sex: Female

DRUGS (13)
  1. OPALMON [Concomitant]
     Active Substance: LIMAPROST
     Indication: PERIPHERAL ARTERIAL OCCLUSIVE DISEASE
     Dosage: 15 MICROG/DAY, UNKNOWN
     Route: 048
     Dates: start: 20150605, end: 20150702
  2. HERBAL EXTRACT NOS [Concomitant]
     Active Substance: HERBALS
     Indication: PERIPHERAL ARTERIAL OCCLUSIVE DISEASE
     Dosage: 2.5 G/DAY, UNKNOWN
     Route: 048
  3. PROSTARMON-F [Concomitant]
     Indication: ESSENTIAL THROMBOCYTHAEMIA
     Dosage: UNK, UNKNOWN
     Route: 042
     Dates: end: 20150703
  4. BUSULFAN [Concomitant]
     Active Substance: BUSULFAN
     Indication: ESSENTIAL THROMBOCYTHAEMIA
     Dosage: 2 TO 6 MG/DAY, UNKNOWN
     Route: 065
     Dates: start: 20150717, end: 20151002
  5. BAYASPIRIN [Suspect]
     Active Substance: ASPIRIN
     Indication: THROMBOSIS PROPHYLAXIS
     Dosage: 100 MG/DAY, UNKNOWN
     Route: 048
     Dates: end: 20150807
  6. TAKEPRON [Concomitant]
     Active Substance: LANSOPRAZOLE
     Indication: PROPHYLAXIS
     Dosage: 15 MG/DAY, UNKNOWN
     Route: 065
  7. BAYASPIRIN [Suspect]
     Active Substance: ASPIRIN
     Indication: ESSENTIAL THROMBOCYTHAEMIA
  8. AMLODIN [Concomitant]
     Active Substance: AMLODIPINE BESYLATE
     Indication: HYPERTENSION
     Dosage: 2.5 MG/DAY, UNKNOWN
     Route: 048
  9. EPADEL-S [Concomitant]
     Active Substance: ICOSAPENT ETHYL
     Indication: HYPERLIPIDAEMIA
     Dosage: 900 MG/DAY, UNKNOWN
     Route: 048
     Dates: end: 20150604
  10. HYDREA [Concomitant]
     Active Substance: HYDROXYUREA
     Indication: ESSENTIAL THROMBOCYTHAEMIA
     Dosage: 500 MG/DAY, UNKNOWN
     Route: 048
     Dates: start: 20151204
  11. MAINTATE [Concomitant]
     Active Substance: BISOPROLOL FUMARATE
     Indication: HYPERTENSION
     Dosage: 5 MG/DAY, UNKNOWN
     Route: 048
  12. 422 (ANAGRELIDE) [Suspect]
     Active Substance: ANAGRELIDE
     Indication: ESSENTIAL THROMBOCYTHAEMIA
     Dosage: 0.5 MG, QOD
     Route: 048
     Dates: start: 20150508
  13. CILOSLET [Concomitant]
     Indication: PERIPHERAL ARTERIAL OCCLUSIVE DISEASE
     Dosage: 50 MG/DAY, UNKNOWN
     Route: 048
     Dates: end: 20150604

REACTIONS (2)
  - Haemorrhage subcutaneous [Recovered/Resolved]
  - Electrocardiogram T wave inversion [Recovering/Resolving]

NARRATIVE: CASE EVENT DATE: 20150703
